FAERS Safety Report 16313722 (Version 2)
Quarter: 2019Q2

REPORT INFORMATION
  Report Type: Spontaneous
  Country: US (occurrence: US)
  Receive Date: 20190515
  Receipt Date: 20190626
  Transmission Date: 20190711
  Serious: Yes (Hospitalization, Other)
  Sender: FDA-Public Use
  Company Number: US-PFIZER INC-2019199188

PATIENT
  Age: 66 Year
  Sex: Female
  Weight: 63.5 kg

DRUGS (1)
  1. AROMASIN [Suspect]
     Active Substance: EXEMESTANE
     Indication: BREAST CANCER FEMALE
     Dosage: 25 MG, 1X/DAY
     Route: 048
     Dates: start: 2018, end: 20190403

REACTIONS (14)
  - Visual impairment [Unknown]
  - Dizziness [Not Recovered/Not Resolved]
  - Weight decreased [Unknown]
  - Feeling hot [Unknown]
  - Myalgia [Unknown]
  - Bone pain [Unknown]
  - Decreased appetite [Unknown]
  - Tremor [Not Recovered/Not Resolved]
  - Hypoaesthesia [Unknown]
  - Chills [Not Recovered/Not Resolved]
  - Blood pressure decreased [Unknown]
  - Paraesthesia [Unknown]
  - Blood pressure increased [Not Recovered/Not Resolved]
  - Back disorder [Unknown]
